FAERS Safety Report 9916057 (Version 1)
Quarter: 2014Q1

REPORT INFORMATION
  Report Type: Spontaneous
  Country: US (occurrence: None)
  Receive Date: 20140219
  Receipt Date: 20140219
  Transmission Date: 20141002
  Serious: Yes (Other)
  Sender: FDA-Public Use
  Company Number: None

PATIENT
  Age: 58 Year
  Sex: Male
  Weight: 81.65 kg

DRUGS (1)
  1. GABAPENTIN [Suspect]
     Indication: HEADACHE
     Route: 048
     Dates: start: 20140213, end: 20140213

REACTIONS (1)
  - Pupil fixed [None]
